FAERS Safety Report 23314116 (Version 2)
Quarter: 2024Q1

REPORT INFORMATION
  Report Type: Spontaneous
  Country: JP (occurrence: JP)
  Receive Date: 20231219
  Receipt Date: 20240202
  Transmission Date: 20240410
  Serious: Yes (Hospitalization, Other)
  Sender: FDA-Public Use
  Company Number: JP-PFIZER INC-PV202300202131

PATIENT
  Age: 94 Year
  Sex: Male
  Weight: 57.8 kg

DRUGS (6)
  1. VFEND [Suspect]
     Active Substance: VORICONAZOLE
     Indication: Candida infection
     Dosage: 08DEC (EVENING)-09DEC (MORNING)
     Route: 048
     Dates: start: 20231208, end: 20231209
  2. VFEND [Suspect]
     Active Substance: VORICONAZOLE
     Dosage: 09DEC (EVENING)-11DEC (MORNING)
     Route: 048
     Dates: start: 20231209, end: 20231211
  3. ADALAT CC [Concomitant]
     Active Substance: NIFEDIPINE
     Indication: Hypertension
     Dosage: 40 MG, 2X/DAY
     Route: 048
     Dates: end: 20231211
  4. FUROSEMIDE [Concomitant]
     Active Substance: FUROSEMIDE
     Indication: Cardiac failure
     Dosage: 20 MG, 1X/DAY
     Route: 048
  5. TOLVAPTAN OD [Concomitant]
     Indication: Cardiac failure
     Dosage: 7.5 MG, 1X/DAY
     Route: 048
  6. VFEND [Concomitant]
     Active Substance: VORICONAZOLE
     Indication: Infective corneal ulcer
     Dosage: 1 % FREQUENTLY
     Route: 047

REACTIONS (5)
  - Acute kidney injury [Recovered/Resolved]
  - Pulmonary congestion [Unknown]
  - Hypophagia [Unknown]
  - Oxygen saturation decreased [Recovering/Resolving]
  - Pleural effusion [Unknown]

NARRATIVE: CASE EVENT DATE: 20231211
